FAERS Safety Report 25706154 (Version 1)
Quarter: 2025Q3

REPORT INFORMATION
  Report Type: Spontaneous
  Country: US (occurrence: US)
  Receive Date: 20250820
  Receipt Date: 20250820
  Transmission Date: 20251021
  Serious: Yes (Hospitalization, Other)
  Sender: NOVO NORDISK
  Company Number: US-NOVOPROD-1485045

PATIENT
  Age: 74 Year
  Sex: Female

DRUGS (2)
  1. OZEMPIC [Suspect]
     Active Substance: SEMAGLUTIDE
     Indication: Blood glucose decreased
     Dosage: 0.5 MG, QW
     Dates: start: 202401
  2. COSENTYX [Concomitant]
     Active Substance: SECUKINUMAB
     Indication: Psoriasis
     Dates: start: 2023, end: 202401

REACTIONS (8)
  - Sciatica [Recovering/Resolving]
  - Muscle strain [Recovering/Resolving]
  - Hip arthroplasty [Recovered/Resolved]
  - Dental implantation [Recovered/Resolved]
  - Uterine polyp [Recovered/Resolved]
  - Constipation [Recovering/Resolving]
  - Diarrhoea [Recovering/Resolving]
  - Weight decreased [Unknown]

NARRATIVE: CASE EVENT DATE: 20240101
